FAERS Safety Report 8551481-3 (Version None)
Quarter: 2012Q3

REPORT INFORMATION
  Report Type: 
  Country: None (occurrence: None)
  Receive Date: 20120730
  Receipt Date: 20120321
  Transmission Date: 20120928
  Serious: No
  Sender: FDA-Public Use
  Company Number: US-ALLERGAN-1202201US

PATIENT
  Age: 31 Year
  Sex: Female

DRUGS (3)
  1. LATISSE [Suspect]
     Indication: GROWTH OF EYELASHES
     Dosage: UNK
     Dates: start: 20111001
  2. LATISSE [Suspect]
     Dosage: UNK
     Route: 061
     Dates: start: 20120301
  3. LATISSE [Suspect]
     Dosage: 2 GTT, QHS
     Route: 061
     Dates: start: 20120101

REACTIONS (5)
  - MADAROSIS [None]
  - DRUG INEFFECTIVE [None]
  - THERAPEUTIC RESPONSE DECREASED [None]
  - INCORRECT DOSE ADMINISTERED [None]
  - EYE DISCHARGE [None]
